FAERS Safety Report 17919653 (Version 1)
Quarter: 2020Q2

REPORT INFORMATION
  Report Type: Spontaneous
  Country: FR (occurrence: FR)
  Receive Date: 20200620
  Receipt Date: 20200620
  Transmission Date: 20200714
  Serious: Yes (Hospitalization, Other)
  Sender: FDA-Public Use
  Company Number: FR-AUROBINDO-AUR-APL-2020-029691

PATIENT
  Age: 64 Year
  Sex: Male

DRUGS (13)
  1. PROGRAF [Suspect]
     Active Substance: TACROLIMUS
     Indication: PROPHYLAXIS AGAINST TRANSPLANT REJECTION
     Dosage: 2 MILLIGRAM, ONCE A DAY (MORNING AND EVENING)
     Route: 048
     Dates: start: 20170529, end: 20170726
  2. CORTANCYL [Concomitant]
     Active Substance: PREDNISONE
     Indication: PROPHYLAXIS AGAINST TRANSPLANT REJECTION
     Dosage: 10 MILLIGRAM, ONCE A DAY (IN THE MORNING THEN FROM 07/21 5 MG)
     Route: 048
     Dates: start: 20170529
  3. XATRAL [Concomitant]
     Active Substance: ALFUZOSIN
     Indication: BENIGN PROSTATIC HYPERPLASIA
     Dosage: 1 DOSAGE FORM, ONCE A DAY (THE EVENING)
     Route: 048
     Dates: start: 20170529
  4. LEDERFOLINE [Suspect]
     Active Substance: LEUCOVORIN CALCIUM
     Indication: HAEMATOTOXICITY
     Dosage: 25 MILLIGRAM, EVERY WEEK (MONDAY)
     Route: 048
     Dates: start: 20170529, end: 20170720
  5. SODIUM HYDROGEN CARBONATE [Concomitant]
     Active Substance: SODIUM BICARBONATE
     Indication: PRODUCT USED FOR UNKNOWN INDICATION
     Dosage: UNK
     Route: 042
  6. AZANTAC [Concomitant]
     Active Substance: RANITIDINE HYDROCHLORIDE
     Indication: GASTROOESOPHAGEAL REFLUX DISEASE
     Dosage: 150 MILLIGRAM
     Route: 048
     Dates: start: 20170529, end: 20170720
  7. FORLAX [Concomitant]
     Active Substance: POLYETHYLENE GLYCOL 4000
     Indication: PRODUCT USED FOR UNKNOWN INDICATION
     Dosage: UNK
     Route: 065
  8. PARACETAMOL [Suspect]
     Active Substance: ACETAMINOPHEN
     Indication: PAIN
     Dosage: 1 GRAM, FOUR TIMES/DAY
     Route: 048
     Dates: start: 20170529, end: 20170720
  9. ROVALCYTE [Suspect]
     Active Substance: VALGANCICLOVIR HYDROCHLORIDE
     Indication: INFECTION PROPHYLAXIS
     Dosage: 900 MILLIGRAM, EVERY WEEK (MONDAY AND THURSDAY)
     Route: 048
     Dates: start: 20170529, end: 20170723
  10. ARANESP [Concomitant]
     Active Substance: DARBEPOETIN ALFA
     Indication: ANAEMIA
     Dosage: 60 MICROGRAM, EVERY WEEK
     Route: 058
  11. NULOJIX [Concomitant]
     Active Substance: BELATACEPT
     Indication: PROPHYLAXIS AGAINST TRANSPLANT REJECTION
     Dosage: 1 DOSAGE FORM, 15 DAY (THEN EVERY MONTH)
     Route: 042
     Dates: start: 20170529
  12. BACTRIM [Suspect]
     Active Substance: SULFAMETHOXAZOLE\TRIMETHOPRIM
     Indication: RENAL TRANSPLANT
     Dosage: 2 DOSAGE FORM, EVERY WEEK (MONDAY AND THURSDAY)
     Route: 048
     Dates: start: 20170529, end: 20180720
  13. CELLCEPT [Suspect]
     Active Substance: MYCOPHENOLATE MOFETIL\MYCOPHENOLATE MOFETIL HYDROCHLORIDE
     Indication: PROPHYLAXIS AGAINST TRANSPLANT REJECTION
     Dosage: 1000 MILLIGRAM, ONCE A DAY (MONDAY AND THURSDAY)
     Route: 048
     Dates: start: 20170529, end: 20180720

REACTIONS (1)
  - Thrombocytopenia [Recovered/Resolved]

NARRATIVE: CASE EVENT DATE: 20170711
